FAERS Safety Report 4738352-5 (Version None)
Quarter: 2005Q3

REPORT INFORMATION
  Report Type: 
  Country: None (occurrence: None)
  Receive Date: 20050803
  Receipt Date: 20050721
  Transmission Date: 20060218
  Serious: Yes (Death)
  Sender: FDA-Public Use
  Company Number: DEU-2004-0001129

PATIENT
  Age: 24 Year
  Sex: Male

DRUGS (1)
  1. SUBSTITOL RETARD KAPSELN(MORPHINE SULFATE) CR CAPSULE DAILY [Suspect]
     Indication: OFF LABEL USE
     Dosage: NTRAVENOUS
     Route: 042
     Dates: start: 20041123

REACTIONS (5)
  - CARDIAC ARREST [None]
  - DRUG ABUSER [None]
  - EMBOLISM [None]
  - OVERDOSE [None]
  - POISONING [None]
